FAERS Safety Report 4527669-5 (Version None)
Quarter: 2004Q4

REPORT INFORMATION
  Report Type: 
  Country: None (occurrence: None)
  Receive Date: 20041210
  Receipt Date: 20041206
  Transmission Date: 20050328
  Serious: Yes (Hospitalization)
  Sender: FDA-Public Use
  Company Number: DE-MERCK-0412DEU00068

PATIENT
  Sex: Female

DRUGS (1)
  1. VIOXX [Suspect]
     Route: 048
     Dates: start: 20001001, end: 20030101

REACTIONS (6)
  - BLINDNESS UNILATERAL [None]
  - HEADACHE [None]
  - RETINAL TEAR [None]
  - RETINAL VASCULAR THROMBOSIS [None]
  - SKIN ULCER [None]
  - THROMBOSIS [None]
